FAERS Safety Report 10868189 (Version 2)
Quarter: 2015Q2

REPORT INFORMATION
  Report Type: Report from Study
  Country: JP (occurrence: JP)
  Receive Date: 20150225
  Receipt Date: 20150501
  Transmission Date: 20150821
  Serious: Yes (Hospitalization, Other)
  Sender: FDA-Public Use
  Company Number: JP-GLAXOSMITHKLINE-JP2015JPN022977

PATIENT
  Age: 15 Year
  Sex: Male
  Weight: 53 kg

DRUGS (36)
  1. ETOPOSIDE. [Suspect]
     Active Substance: ETOPOSIDE
     Dosage: 100 MG/M2, BID
     Route: 041
     Dates: start: 20130921, end: 20130923
  2. CYLOCIDE [Suspect]
     Active Substance: CYTARABINE
     Dosage: 2000 MG/M2, BID
     Route: 041
     Dates: start: 20130817, end: 20130817
  3. LEUNASE [Suspect]
     Active Substance: ASPARAGINASE
     Indication: PRECURSOR T-LYMPHOBLASTIC LYMPHOMA/LEUKAEMIA
     Dosage: 5000 UNK, UNK
     Route: 042
     Dates: start: 20130307
  4. LEUNASE [Suspect]
     Active Substance: ASPARAGINASE
     Dosage: 5000 UNK, UNK
     Route: 042
     Dates: start: 20131224
  5. NELARABINE [Suspect]
     Active Substance: NELARABINE
     Dosage: 650 MG/M2, QD
     Route: 041
     Dates: start: 20141022, end: 20141022
  6. MTX [Suspect]
     Active Substance: METHOTREXATE SODIUM
     Dosage: 5 UNK, UNK
     Route: 042
     Dates: start: 20130813, end: 20130813
  7. FLUOROMETHOLONE. [Concomitant]
     Active Substance: FLUOROMETHOLONE
     Indication: PROPHYLAXIS
     Dosage: UNK
     Dates: start: 20130618, end: 20130625
  8. NELARABINE [Suspect]
     Active Substance: NELARABINE
     Dosage: 650 MG/M2, QD
     Route: 041
     Dates: start: 20130912, end: 20130912
  9. ETOPOSIDE. [Suspect]
     Active Substance: ETOPOSIDE
     Indication: PRECURSOR T-LYMPHOBLASTIC LYMPHOMA/LEUKAEMIA
     Dosage: 100 MG/M2, BID
     Route: 041
     Dates: start: 20130701, end: 20130703
  10. DEXAMETASONA [Suspect]
     Active Substance: DEXAMETHASONE
     Dosage: UNK UNK, TID
     Route: 065
     Dates: start: 20131217
  11. ENDOXAN [Suspect]
     Active Substance: CYCLOPHOSPHAMIDE
     Dosage: 200 MG/M2, BID
     Route: 041
     Dates: start: 20130814, end: 20130816
  12. MTX [Suspect]
     Active Substance: METHOTREXATE SODIUM
     Indication: PRECURSOR T-LYMPHOBLASTIC LYMPHOMA/LEUKAEMIA
     Dosage: 5 UNK, UNK
     Route: 042
     Dates: start: 20130716, end: 20130716
  13. 6-MERCAPTOPURINE RIBOSIDE [Suspect]
     Active Substance: THIOINOSINE
     Dosage: 60 MG/M2, QD
     Route: 048
     Dates: start: 20140213, end: 20140226
  14. ITRIZOLE [Concomitant]
     Active Substance: ITRACONAZOLE
     Indication: PROPHYLAXIS
     Dosage: UNK
     Dates: start: 20130611
  15. NELARABINE [Suspect]
     Active Substance: NELARABINE
     Dosage: 650 MG/M2, QD
     Route: 041
     Dates: start: 20141217, end: 20141217
  16. DEXAMETASONA [Suspect]
     Active Substance: DEXAMETHASONE
     Dosage: UNK UNK, TID
     Route: 065
     Dates: start: 20130629
  17. CYLOCIDE [Suspect]
     Active Substance: CYTARABINE
     Indication: PRECURSOR T-LYMPHOBLASTIC LYMPHOMA/LEUKAEMIA
     Dosage: 75 MG/M2, UNK
     Route: 041
     Dates: start: 20130419
  18. CYLOCIDE [Suspect]
     Active Substance: CYTARABINE
     Dosage: 2000 MG/M2, BID
     Route: 041
     Dates: start: 20130629, end: 20130630
  19. 6-MERCAPTOPURINE RIBOSIDE [Suspect]
     Active Substance: THIOINOSINE
     Indication: PRECURSOR T-LYMPHOBLASTIC LYMPHOMA/LEUKAEMIA
     Dosage: 60 MG/M2, QD
     Route: 048
     Dates: start: 20130417, end: 20130514
  20. ENDOXAN [Suspect]
     Active Substance: CYCLOPHOSPHAMIDE
     Dosage: 200 MG/M2, BID
     Route: 041
     Dates: start: 20131120, end: 20131122
  21. CYLOCIDE [Suspect]
     Active Substance: CYTARABINE
     Dosage: 2000 MG/M2, BID
     Route: 041
     Dates: start: 20130919, end: 20130920
  22. BAKTAR [Concomitant]
     Active Substance: SULFAMETHOXAZOLE\TRIMETHOPRIM
     Indication: PROPHYLAXIS
     Dosage: UNK
     Dates: start: 20130611
  23. ENDOXAN [Suspect]
     Active Substance: CYCLOPHOSPHAMIDE
     Dosage: 1000 MG/M2, QD
     Route: 041
     Dates: start: 20130515, end: 20130515
  24. ENDOXAN [Suspect]
     Active Substance: CYCLOPHOSPHAMIDE
     Dosage: 1000 MG/M2, QD
     Route: 041
     Dates: start: 20140213, end: 20140213
  25. LEUNASE [Suspect]
     Active Substance: ASPARAGINASE
     Dosage: 5000 UNK, UNK
     Route: 042
     Dates: start: 20130704
  26. 6-MERCAPTOPURINE RIBOSIDE [Suspect]
     Active Substance: THIOINOSINE
     Dosage: 50 MG/M2, QD
     Route: 048
     Dates: start: 20140402
  27. NELARABINE [Suspect]
     Active Substance: NELARABINE
     Dosage: 650 MG/M2, QD
     Route: 041
     Dates: start: 20140614, end: 20140614
  28. DEXAMETASONA [Suspect]
     Active Substance: DEXAMETHASONE
     Indication: PRECURSOR T-LYMPHOBLASTIC LYMPHOMA/LEUKAEMIA
     Dosage: UNK UNK, TID
     Route: 065
     Dates: start: 20130307
  29. MTX [Suspect]
     Active Substance: METHOTREXATE SODIUM
     Dosage: 5 UNK, UNK
     Route: 042
     Dates: start: 20131119, end: 20131119
  30. MTX [Suspect]
     Active Substance: METHOTREXATE SODIUM
     Dosage: 20 MG/M2, QD
     Route: 048
     Dates: start: 20140402
  31. CYLOCIDE [Suspect]
     Active Substance: CYTARABINE
     Dosage: 75 MG/M2, UNK
     Route: 041
     Dates: start: 20140213
  32. NELARABINE [Suspect]
     Active Substance: NELARABINE
     Indication: PRECURSOR T-LYMPHOBLASTIC LYMPHOMA/LEUKAEMIA
     Dosage: 650 MG/M2, QD
     Route: 041
     Dates: start: 20130611, end: 20130611
  33. NELARABINE [Suspect]
     Active Substance: NELARABINE
     Dosage: 650 MG/M2, QD
     Route: 041
     Dates: start: 20140813, end: 20140813
  34. ENDOXAN [Suspect]
     Active Substance: CYCLOPHOSPHAMIDE
     Indication: PRECURSOR T-LYMPHOBLASTIC LYMPHOMA/LEUKAEMIA
     Dosage: 1000 MG/M2, QD
     Route: 041
     Dates: start: 20130417, end: 20130417
  35. MTX [Suspect]
     Active Substance: METHOTREXATE SODIUM
     Dosage: 5 UNK, UNK
     Route: 042
     Dates: start: 20131022, end: 20131022
  36. CYLOCIDE [Suspect]
     Active Substance: CYTARABINE
     Dosage: 2000 MG/M2, BID
     Route: 041
     Dates: start: 20131123, end: 20131123

REACTIONS (20)
  - Febrile neutropenia [Recovered/Resolved]
  - Febrile neutropenia [Recovered/Resolved]
  - Nausea [Recovered/Resolved]
  - Bronchitis [Recovered/Resolved]
  - Sepsis [Recovered/Resolved]
  - Nausea [Recovered/Resolved]
  - Hepatic function abnormal [Recovered/Resolved]
  - Gastric ulcer [Recovering/Resolving]
  - Hypoaesthesia [Recovered/Resolved]
  - Nausea [Recovered/Resolved]
  - Systemic mycosis [Recovered/Resolved]
  - Neutropenia [Recovered/Resolved]
  - Hepatic function abnormal [Recovered/Resolved]
  - Hepatic function abnormal [Recovered/Resolved]
  - Nausea [Recovered/Resolved]
  - Nausea [Recovered/Resolved]
  - Hypogammaglobulinaemia [Recovered/Resolved]
  - Post herpetic neuralgia [Recovered/Resolved]
  - Nausea [Recovered/Resolved]
  - Pharyngitis [Recovered/Resolved]

NARRATIVE: CASE EVENT DATE: 20130611
